FAERS Safety Report 4957716-8 (Version None)
Quarter: 2006Q1

REPORT INFORMATION
  Report Type: 
  Country: None (occurrence: None)
  Receive Date: 20060330
  Receipt Date: 20060322
  Transmission Date: 20060701
  Serious: Yes (Other)
  Sender: FDA-Public Use
  Company Number: CH-JNJFOC-20060304452

PATIENT
  Age: 54 Year
  Sex: Female

DRUGS (7)
  1. TRAMAL RETARD [Suspect]
     Indication: BACK PAIN
     Route: 048
  2. STILNOX [Interacting]
     Indication: DRUG USE FOR UNKNOWN INDICATION
     Route: 048
  3. FLUCTINE [Concomitant]
     Indication: DEPRESSION
     Route: 048
  4. TRANXILIUM [Concomitant]
     Route: 048
  5. SIRDALUD [Concomitant]
     Route: 065
  6. DAFALGAN [Concomitant]
     Route: 048
  7. TEMGESIC [Concomitant]
     Route: 065

REACTIONS (6)
  - CONVULSION [None]
  - DRUG INTERACTION [None]
  - INTENTIONAL OVERDOSE [None]
  - NAUSEA [None]
  - SEROTONIN SYNDROME [None]
  - VOMITING [None]
